FAERS Safety Report 25548938 (Version 3)
Quarter: 2025Q3

REPORT INFORMATION
  Report Type: Spontaneous
  Country: JP (occurrence: JP)
  Receive Date: 20250714
  Receipt Date: 20250912
  Transmission Date: 20251021
  Serious: Yes (Life-Threatening)
  Sender: BAYER HEALTHCARE PHARMACEUTICALS INC.
  Company Number: JP-BAYER-2025A091750

PATIENT
  Age: 83 Year
  Sex: Male
  Weight: 67 kg

DRUGS (6)
  1. KERENDIA [Suspect]
     Active Substance: FINERENONE
     Dosage: DAILY DOSE 20 MG
     Route: 048
     Dates: end: 20250703
  2. SAXAGLIPTIN [Concomitant]
     Active Substance: SAXAGLIPTIN
  3. VONOPRAZAN FUMARATE [Concomitant]
     Active Substance: VONOPRAZAN FUMARATE
  4. TELMISARTAN [Concomitant]
     Active Substance: TELMISARTAN
  5. AMLODIPINE [Concomitant]
     Active Substance: AMLODIPINE BESYLATE
  6. LACTULOSE [Concomitant]
     Active Substance: LACTULOSE

REACTIONS (1)
  - Hyperkalaemia [Recovered/Resolved]

NARRATIVE: CASE EVENT DATE: 20250703
